FAERS Safety Report 4360456-X (Version None)
Quarter: 2004Q2

REPORT INFORMATION
  Report Type: 
  Country: None (occurrence: None)
  Receive Date: 20040514
  Receipt Date: 20040505
  Transmission Date: 20050107
  Serious: Yes (Death)
  Sender: FDA-Public Use
  Company Number: 04H-163-0260159-00

PATIENT
  Age: 60 Year
  Sex: Female

DRUGS (3)
  1. MORPHINE SUL INJ [Suspect]
     Dosage: SEE IMAGE
     Route: 042
     Dates: start: 20040401, end: 20040416
  2. MORPHINE SUL INJ [Suspect]
     Dosage: SEE IMAGE
     Route: 042
     Dates: start: 20040401, end: 20040416
  3. MORPHINE SUL INJ [Suspect]
     Dosage: SEE IMAGE
     Route: 042
     Dates: start: 20040401, end: 20040416

REACTIONS (5)
  - COMA [None]
  - FALL [None]
  - MEDICAL DEVICE COMPLICATION [None]
  - MEDICATION ERROR [None]
  - OVERDOSE [None]
